FAERS Safety Report 7659871-8 (Version None)
Quarter: 2011Q3

REPORT INFORMATION
  Report Type: 
  Country: None (occurrence: None)
  Receive Date: 20110805
  Receipt Date: 20110803
  Transmission Date: 20111222
  Serious: Yes (Death, Hospitalization)
  Sender: FDA-Public Use
  Company Number: DE-ABBOTT-11P-062-0843903-00

PATIENT
  Age: 64 Year
  Sex: Male
  Weight: 49 kg

DRUGS (11)
  1. TORSEMIDE [Concomitant]
     Indication: PRODUCT USED FOR UNKNOWN INDICATION
     Dates: start: 20090424
  2. ANTIPHOS [Concomitant]
  3. NEORECORMON [Concomitant]
     Indication: PRODUCT USED FOR UNKNOWN INDICATION
  4. ZEMPLAR [Suspect]
     Indication: PRODUCT USED FOR UNKNOWN INDICATION
     Route: 042
  5. BISOPROLOL FUMARATE [Concomitant]
     Indication: PRODUCT USED FOR UNKNOWN INDICATION
     Dates: start: 20090424
  6. ANTIPHOS [Concomitant]
     Indication: PRODUCT USED FOR UNKNOWN INDICATION
     Dates: start: 20090706
  7. RENAGEL [Concomitant]
     Indication: PRODUCT USED FOR UNKNOWN INDICATION
  8. NORVASC [Concomitant]
     Indication: PRODUCT USED FOR UNKNOWN INDICATION
     Dates: start: 20090424
  9. PANTOPRAZOLE [Concomitant]
     Indication: PRODUCT USED FOR UNKNOWN INDICATION
     Dates: start: 20090610
  10. CA ACETAT 700 [Concomitant]
     Indication: PRODUCT USED FOR UNKNOWN INDICATION
     Dates: start: 20090713
  11. NIBUDIPIN [Concomitant]
     Indication: PRODUCT USED FOR UNKNOWN INDICATION
     Dates: start: 20090713

REACTIONS (2)
  - HYPERTENSIVE CRISIS [None]
  - CARDIAC FAILURE [None]
